FAERS Safety Report 5193838-7 (Version None)
Quarter: 2006Q4

REPORT INFORMATION
  Report Type: 
  Country: None (occurrence: None)
  Receive Date: 20061222
  Receipt Date: 20061209
  Transmission Date: 20070319
  Serious: Yes (Other)
  Sender: FDA-Public Use
  Company Number: 2006152396

PATIENT
  Age: 56 Year
  Sex: Female
  Weight: 68.0396 kg

DRUGS (1)
  1. CHANTIX [Suspect]
     Indication: SMOKING CESSATION THERAPY
     Dosage: 0.5 MG (0.5 MG, 1 IN 1 D), ORAL
     Route: 048
     Dates: start: 20061205

REACTIONS (6)
  - CHEST DISCOMFORT [None]
  - DIPLOPIA [None]
  - DYSPEPSIA [None]
  - EATING DISORDER [None]
  - HEADACHE [None]
  - HYPOTENSION [None]
